FAERS Safety Report 7396105-6 (Version None)
Quarter: 2011Q2

REPORT INFORMATION
  Report Type: 
  Country: None (occurrence: None)
  Receive Date: 20110406
  Receipt Date: 20110328
  Transmission Date: 20111010
  Serious: Yes (Hospitalization)
  Sender: FDA-Public Use
  Company Number: FR-ELI_LILLY_AND_COMPANY-FR201103007557

PATIENT
  Sex: Male

DRUGS (4)
  1. COVERSYL [Concomitant]
     Dosage: 5 MG, QD
     Route: 048
     Dates: start: 20100401
  2. CYMBALTA [Suspect]
     Dosage: UNK UNK, UNKNOWN
     Route: 048
     Dates: start: 20100715
  3. CARDENSIEL [Concomitant]
     Dosage: 5 MG, QD
     Route: 048
     Dates: start: 20090801
  4. LYSANXIA [Concomitant]
     Dosage: 10 MG, QD
     Route: 048
     Dates: start: 20100401

REACTIONS (3)
  - STRESS [None]
  - AMAUROSIS [None]
  - DIPLOPIA [None]
